FAERS Safety Report 16649916 (Version 2)
Quarter: 2020Q4

REPORT INFORMATION
  Report Type: Report from Study
  Country: None (occurrence: CA)
  Receive Date: 20190731
  Receipt Date: 20201021
  Transmission Date: 20210113
  Serious: Yes (Other)
  Sender: FDA-Public Use
  Company Number: CA-ABBVIE-19K-028-2871736-00

PATIENT
  Sex: Male

DRUGS (2)
  1. HUMIRA [Suspect]
     Active Substance: ADALIMUMAB
     Route: 058
  2. HUMIRA [Suspect]
     Active Substance: ADALIMUMAB
     Indication: CROHN^S DISEASE
     Route: 058
     Dates: start: 20090305

REACTIONS (5)
  - Fistula discharge [Not Recovered/Not Resolved]
  - Anal abscess [Not Recovered/Not Resolved]
  - Intestinal stenosis [Unknown]
  - Procedural pain [Unknown]
  - Frequent bowel movements [Unknown]
